FAERS Safety Report 7268557-3 (Version None)
Quarter: 2010Q4

REPORT INFORMATION
  Report Type: 
  Country: None (occurrence: None)
  Receive Date: 20101206
  Receipt Date: 20100825
  Transmission Date: 20110411
  Serious: No
  Sender: FDA-Public Use
  Company Number: 2010SP046196

PATIENT
  Age: 69 Year
  Sex: Female

DRUGS (2)
  1. SAPHRIS [Suspect]
     Indication: SCHIZOPHRENIA
     Dosage: ;SL
     Route: 060
     Dates: start: 20100801, end: 20100809
  2. SEROQUEL [Concomitant]

REACTIONS (2)
  - ADVERSE EVENT [None]
  - FALL [None]
